FAERS Safety Report 15297352 (Version 1)
Quarter: 2018Q3

REPORT INFORMATION
  Report Type: Spontaneous
  Country: FR (occurrence: FR)
  Receive Date: 20180820
  Receipt Date: 20180820
  Transmission Date: 20181010
  Serious: Yes (Death, Other)
  Sender: FDA-Public Use
  Company Number: FR-FRESENIUS KABI-FK201808764

PATIENT
  Age: 46 Year
  Sex: Male

DRUGS (2)
  1. IDARUBICIN [Suspect]
     Active Substance: IDARUBICIN
     Indication: CHLOROMA
     Dosage: HIGH DOSE
     Route: 065
  2. CYTARABINE (MANUFACTURER UNKNOWN) [Suspect]
     Active Substance: CYTARABINE
     Indication: CHLOROMA
     Dosage: HIGH DOSE
     Route: 065

REACTIONS (4)
  - Cerebral haemorrhage [Fatal]
  - Thrombocytopenia [Fatal]
  - Pneumonia [Unknown]
  - Colitis [Unknown]
